FAERS Safety Report 7660192-8 (Version None)
Quarter: 2011Q3

REPORT INFORMATION
  Report Type: 
  Country: None (occurrence: None)
  Receive Date: 20110805
  Receipt Date: 20110727
  Transmission Date: 20111222
  Serious: Yes (Other)
  Sender: FDA-Public Use
  Company Number: PHHY2011CA47714

PATIENT
  Sex: Female

DRUGS (3)
  1. SYNTHROID [Concomitant]
     Dosage: 100 UG, DAILY
  2. ZOLEDRONOC ACID [Suspect]
     Indication: OSTEOPOROSIS
     Dosage: 5 MG, UNK
     Route: 042
     Dates: start: 20100811
  3. PANTOPRAZOLE SODIUM (TECTA) [Concomitant]
     Dosage: 40 MG, DAILY

REACTIONS (3)
  - ORAL MUCOSAL EXFOLIATION [None]
  - ORAL PAIN [None]
  - SKIN EXFOLIATION [None]
